FAERS Safety Report 15598009 (Version 1)
Quarter: 2018Q4

REPORT INFORMATION
  Report Type: Spontaneous
  Country: JP (occurrence: JP)
  Receive Date: 20181108
  Receipt Date: 20181108
  Transmission Date: 20190205
  Serious: Yes (Other)
  Sender: FDA-Public Use
  Company Number: JP-MYLANLABS-2018M1083873

PATIENT
  Age: 40 Year
  Sex: Male

DRUGS (2)
  1. LEVOFLOXACIN. [Suspect]
     Active Substance: LEVOFLOXACIN
     Indication: PAROTITIS
     Route: 048
  2. SULPHAMETHOXAZOLE/TRIMETHOPRIM [Suspect]
     Active Substance: SULFAMETHOXAZOLE\TRIMETHOPRIM
     Indication: PAROTITIS
     Dosage: TWO SINGLE STRENGTH TABLETS OF COTRIMOXAZOLE TWICE PER DAY WAS ADDED TO THE ORAL LEVOFLOXACIN.
     Route: 048

REACTIONS (1)
  - Treatment failure [Unknown]
